FAERS Safety Report 18315085 (Version 6)
Quarter: 2020Q4

REPORT INFORMATION
  Report Type: Report from Study
  Country: None (occurrence: US)
  Receive Date: 20200925
  Receipt Date: 20201113
  Transmission Date: 20210113
  Serious: Yes (Hospitalization)
  Sender: FDA-Public Use
  Company Number: US-ABBVIE-20K-163-3536505-00

PATIENT
  Age: 42 Year
  Sex: Male

DRUGS (2)
  1. MESALAMINE. [Concomitant]
     Active Substance: MESALAMINE
     Indication: PRODUCT USED FOR UNKNOWN INDICATION
  2. HUMIRA [Suspect]
     Active Substance: ADALIMUMAB
     Indication: CROHN^S DISEASE
     Dosage: CITRATE FREE
     Route: 058
     Dates: start: 20200808

REACTIONS (22)
  - Weight increased [Recovered/Resolved]
  - Decreased appetite [Unknown]
  - Balance disorder [Unknown]
  - Pain in extremity [Recovering/Resolving]
  - Loss of personal independence in daily activities [Unknown]
  - Colitis [Unknown]
  - Hyperhidrosis [Unknown]
  - Depressed mood [Not Recovered/Not Resolved]
  - Peripheral swelling [Recovering/Resolving]
  - Oropharyngeal pain [Unknown]
  - Crohn^s disease [Recovering/Resolving]
  - Malaise [Recovering/Resolving]
  - Chills [Unknown]
  - Acne [Unknown]
  - Fatigue [Unknown]
  - Dyspnoea [Unknown]
  - Insomnia [Not Recovered/Not Resolved]
  - Weight decreased [Unknown]
  - Anxiety [Not Recovered/Not Resolved]
  - Neck pain [Unknown]
  - Rash macular [Not Recovered/Not Resolved]
  - Abnormal faeces [Unknown]

NARRATIVE: CASE EVENT DATE: 2020
